FAERS Safety Report 9884148 (Version 1)
Quarter: 2014Q1

REPORT INFORMATION
  Report Type: Spontaneous
  Country: US (occurrence: US)
  Receive Date: 20140210
  Receipt Date: 20140210
  Transmission Date: 20141002
  Serious: No
  Sender: FDA-Public Use
  Company Number: US-ALLERGAN-1318648US

PATIENT
  Sex: Female

DRUGS (3)
  1. BOTOX COSMETIC [Suspect]
     Indication: SKIN WRINKLING
     Dosage: 37 UNITS, SINGLE
     Route: 030
     Dates: start: 20131008, end: 20131008
  2. BOTOX COSMETIC [Suspect]
     Indication: SKIN WRINKLING
  3. IMMUNOTHERAPY/ALLERGY INJECTIONS [Concomitant]
     Indication: HYPERSENSITIVITY
     Dosage: UNK, QOD

REACTIONS (2)
  - Muscle disorder [Unknown]
  - Skin disorder [Unknown]
